FAERS Safety Report 15395178 (Version 2)
Quarter: 2018Q4

REPORT INFORMATION
  Report Type: Spontaneous
  Country: US (occurrence: US)
  Receive Date: 20180918
  Receipt Date: 20181207
  Transmission Date: 20190204
  Serious: No
  Sender: FDA-Public Use
  Company Number: US-PFIZER INC-2018371141

PATIENT
  Age: 70 Year
  Sex: Female

DRUGS (1)
  1. GABAPENTIN. [Suspect]
     Active Substance: GABAPENTIN
     Indication: BURNING SENSATION
     Dosage: 50 MG, 3X/DAY [1 CAPSULE BY MOUTH 3 (THREE) TIMES DAILY]
     Route: 048
     Dates: start: 201809, end: 201809

REACTIONS (1)
  - Drug ineffective for unapproved indication [Not Recovered/Not Resolved]
